FAERS Safety Report 7013880-0 (Version None)
Quarter: 2010Q3

REPORT INFORMATION
  Report Type: 
  Country: None (occurrence: None)
  Receive Date: 20100924
  Receipt Date: 20100920
  Transmission Date: 20110219
  Serious: Yes (Other)
  Sender: FDA-Public Use
  Company Number: DE-BAYER-201026801GPV

PATIENT
  Age: 45 Year
  Sex: Female
  Weight: 70 kg

DRUGS (1)
  1. MIRENA [Suspect]
     Indication: PRODUCT USED FOR UNKNOWN INDICATION
     Route: 015
     Dates: start: 20100301

REACTIONS (7)
  - ARTHRALGIA [None]
  - BREAST PAIN [None]
  - FLUID RETENTION [None]
  - HIRSUTISM [None]
  - HYPOAESTHESIA FACIAL [None]
  - THROMBOSIS [None]
  - WEIGHT INCREASED [None]
